FAERS Safety Report 4316291-1 (Version None)
Quarter: 2004Q1

REPORT INFORMATION
  Report Type: 
  Country: None (occurrence: None)
  Receive Date: 20040311
  Receipt Date: 20040304
  Transmission Date: 20041129
  Serious: Yes (Disabling, Other)
  Sender: FDA-Public Use
  Company Number: GBWYE511114JAN04

PATIENT
  Age: 51 Year
  Sex: Female

DRUGS (1)
  1. EFFEXOR [Suspect]
     Indication: DEPRESSION
     Dosage: 37.5 MG 1 X PER 1 TOT, ORAL
     Route: 048
     Dates: start: 20031218, end: 20031218

REACTIONS (10)
  - ASTHENIA [None]
  - COLD SWEAT [None]
  - COMMUNICATION DISORDER [None]
  - DIZZINESS [None]
  - DRY MOUTH [None]
  - DYSARTHRIA [None]
  - HYPERHIDROSIS [None]
  - NONSPECIFIC REACTION [None]
  - SYNCOPE [None]
  - VOMITING [None]
